FAERS Safety Report 7432544-2 (Version None)
Quarter: 2011Q2

REPORT INFORMATION
  Report Type: 
  Country: None (occurrence: None)
  Receive Date: 20110422
  Receipt Date: 20110412
  Transmission Date: 20111010
  Serious: Yes (Hospitalization, Other)
  Sender: FDA-Public Use
  Company Number: US-AMGEN-USASP2011019490

PATIENT
  Age: 51 Year
  Sex: Female

DRUGS (2)
  1. REMICADE [Concomitant]
  2. ENBREL [Suspect]
     Indication: RHEUMATOID ARTHRITIS
     Dosage: 50 MG, QWK
     Dates: start: 20040101

REACTIONS (8)
  - RHEUMATOID ARTHRITIS [None]
  - SCAR EXCISION [None]
  - HEADACHE [None]
  - NAUSEA [None]
  - OEDEMA PERIPHERAL [None]
  - DIABETES MELLITUS [None]
  - PAIN IN EXTREMITY [None]
  - CYST REMOVAL [None]
